FAERS Safety Report 24109734 (Version 1)
Quarter: 2024Q3

REPORT INFORMATION
  Report Type: Spontaneous
  Country: CN (occurrence: CN)
  Receive Date: 20240718
  Receipt Date: 20240718
  Transmission Date: 20241017
  Serious: Yes (Hospitalization, Other)
  Sender: PFIZER
  Company Number: CN-PFIZER INC-PV202400093052

PATIENT
  Age: 13 Year
  Sex: Male
  Weight: 58 kg

DRUGS (10)
  1. SIROLIMUS [Suspect]
     Active Substance: SIROLIMUS
     Indication: Malignant neoplasm of orbit
     Dosage: 2 MG, 1X/DAY
     Route: 048
     Dates: start: 20240618, end: 20240627
  2. SIROLIMUS [Suspect]
     Active Substance: SIROLIMUS
     Indication: Embryonal rhabdomyosarcoma
  3. DACTINOMYCIN [Suspect]
     Active Substance: DACTINOMYCIN
     Indication: Malignant neoplasm of orbit
     Dosage: 2.5 MG, 1X/DAY
     Route: 041
     Dates: start: 20240618, end: 20240619
  4. DACTINOMYCIN [Suspect]
     Active Substance: DACTINOMYCIN
     Indication: Embryonal rhabdomyosarcoma
  5. CYCLOPHOSPHAMIDE [Suspect]
     Active Substance: CYCLOPHOSPHAMIDE
     Indication: Malignant neoplasm of orbit
     Dosage: 0.684 G, 1X/DAY
     Route: 041
     Dates: start: 20240618, end: 20240621
  6. CYCLOPHOSPHAMIDE [Suspect]
     Active Substance: CYCLOPHOSPHAMIDE
     Indication: Embryonal rhabdomyosarcoma
  7. DOXORUBICIN HYDROCHLORIDE [Suspect]
     Active Substance: DOXORUBICIN HYDROCHLORIDE
     Indication: Malignant neoplasm of orbit
     Dosage: 59.85 MG, 1X/DAY
     Route: 041
     Dates: start: 20240618, end: 20240619
  8. DOXORUBICIN HYDROCHLORIDE [Suspect]
     Active Substance: DOXORUBICIN HYDROCHLORIDE
     Indication: Embryonal rhabdomyosarcoma
  9. VINCRISTINE SULFATE [Suspect]
     Active Substance: VINCRISTINE SULFATE
     Indication: Malignant neoplasm of orbit
     Dosage: 2 MG, 1X/DAY
     Route: 042
     Dates: start: 20240618, end: 20240618
  10. VINCRISTINE SULFATE [Suspect]
     Active Substance: VINCRISTINE SULFATE
     Indication: Embryonal rhabdomyosarcoma

REACTIONS (4)
  - Myelosuppression [Recovering/Resolving]
  - Stomatitis [Recovering/Resolving]
  - Pyrexia [Recovering/Resolving]
  - Off label use [Unknown]

NARRATIVE: CASE EVENT DATE: 20240618
